FAERS Safety Report 10042550 (Version 1)
Quarter: 2014Q1

REPORT INFORMATION
  Report Type: Spontaneous
  Country: US (occurrence: US)
  Receive Date: 20140327
  Receipt Date: 20140327
  Transmission Date: 20141002
  Serious: No
  Sender: FDA-Public Use
  Company Number: US-009507513-1403USA012760

PATIENT
  Sex: Female

DRUGS (1)
  1. DR. SCHOLL^S CLEAR AWAY ONE STEP CLEAR STRIPS [Suspect]
     Indication: SKIN PAPILLOMA
     Dosage: UNK, ONCE
     Route: 061

REACTIONS (2)
  - Pain [Unknown]
  - Application site discolouration [Unknown]
